FAERS Safety Report 16969506 (Version 2)
Quarter: 2020Q3

REPORT INFORMATION
  Report Type: Spontaneous
  Country: CN (occurrence: CN)
  Receive Date: 20191029
  Receipt Date: 20200710
  Transmission Date: 20201102
  Serious: Yes (Other)
  Sender: FDA-Public Use
  Company Number: CN-PFIZER INC-2019461050

PATIENT
  Age: 83 Year
  Sex: Male

DRUGS (2)
  1. SULBACTAM [Suspect]
     Active Substance: SULBACTAM
     Indication: PNEUMONIA
     Dosage: UNK
     Dates: start: 20190913
  2. TIGECYCLINE. [Suspect]
     Active Substance: TIGECYCLINE
     Indication: PNEUMONIA
     Dosage: 100 MG, 2X/DAY
     Route: 041
     Dates: start: 20190913, end: 20190925

REACTIONS (4)
  - Blood bilirubin increased [Recovering/Resolving]
  - Off label use [Unknown]
  - Abdominal pain [Recovering/Resolving]
  - Product use in unapproved indication [Unknown]

NARRATIVE: CASE EVENT DATE: 20190913
